FAERS Safety Report 8193759-1 (Version None)
Quarter: 2012Q1

REPORT INFORMATION
  Report Type: 
  Country: None (occurrence: None)
  Receive Date: 20120308
  Receipt Date: 20120228
  Transmission Date: 20120608
  Serious: Yes (Other)
  Sender: FDA-Public Use
  Company Number: DE-JNJFOC-20120301169

PATIENT
  Age: 91 Year
  Sex: Female
  Weight: 50 kg

DRUGS (4)
  1. VOCADO [Concomitant]
     Dates: start: 20120116
  2. BENALAPRIL [Concomitant]
     Dates: end: 20120116
  3. XARELTO [Suspect]
     Indication: ATRIAL FIBRILLATION
     Route: 048
     Dates: start: 20120116, end: 20120223
  4. ASPIRIN [Concomitant]
     Dates: start: 20100101, end: 20120116

REACTIONS (1)
  - DEEP VEIN THROMBOSIS [None]
